FAERS Safety Report 9455239 (Version 3)
Quarter: 2013Q2

REPORT INFORMATION
  Report Type: Spontaneous
  Country: US (occurrence: None)
  Receive Date: 20130514
  Receipt Date: 20130621
  Transmission Date: 20140414
  Serious: Yes (Disabling)
  Sender: FDA-Public Use
  Company Number: 37347

PATIENT
  Age: 60 Year
  Sex: Female
  Weight: 88.45 kg

DRUGS (22)
  1. GLASSIA [Suspect]
     Indication: ALPHA-1 ANTI-TRYPSIN DEFICIENCY
     Route: 042
     Dates: start: 20111020
  2. TRAGENTA [Concomitant]
  3. POTASSIUM [Concomitant]
  4. LOSARTAN [Concomitant]
  5. COZAAR [Concomitant]
  6. ADVAIR DISKUS [Concomitant]
  7. PROTONIX [Concomitant]
  8. GABAPENTIN [Concomitant]
  9. DIPHENOXYLATE-ATROPINE [Concomitant]
  10. HUMALOG [Concomitant]
  11. METOPROLOL TARTRATE [Concomitant]
  12. SAVISION [Concomitant]
  13. VITAMIN E BLEND [Concomitant]
  14. METFORMIN HCL [Concomitant]
  15. LASIX [Concomitant]
  16. COUMADIN [Concomitant]
  17. LEVEMIR FLEXPEN [Concomitant]
  18. ARALAST NP [Concomitant]
  19. EPI E-Z PEN JR [Concomitant]
  20. REVATIO [Concomitant]
  21. OXYGEN [Concomitant]
  22. SPIRIVA HANDIHALER [Concomitant]

REACTIONS (12)
  - Somnolence [None]
  - Asthenia [None]
  - Blood disorder [None]
  - Feeling abnormal [None]
  - Visual acuity reduced [None]
  - White blood cell count decreased [None]
  - Red blood cell count decreased [None]
  - Blood iron decreased [None]
  - Infusion related reaction [None]
  - Impaired driving ability [None]
  - Gastrointestinal haemorrhage [None]
  - Pulmonary hypertension [None]
